FAERS Safety Report 7017738-2 (Version None)
Quarter: 2010Q3

REPORT INFORMATION
  Report Type: 
  Country: None (occurrence: None)
  Receive Date: 20100909
  Receipt Date: 20100805
  Transmission Date: 20110219
  Serious: No
  Sender: FDA-Public Use
  Company Number: 2010SP043152

PATIENT
  Age: 51 Year
  Sex: Male

DRUGS (2)
  1. SAPHRIS [Suspect]
     Indication: SCHIZOPHRENIA
     Dosage: 5 MG;BID
     Dates: start: 20100701
  2. SEROQUEL (CON.) [Concomitant]

REACTIONS (1)
  - HEADACHE [None]
